FAERS Safety Report 6526713-3 (Version None)
Quarter: 2010Q1

REPORT INFORMATION
  Report Type: 
  Country: None (occurrence: None)
  Receive Date: 20100104
  Receipt Date: 20100104
  Transmission Date: 20100710
  Serious: Yes (Other)
  Sender: FDA-Public Use
  Company Number: None

PATIENT
  Sex: Female
  Weight: 63.5036 kg

DRUGS (1)
  1. VITAMIN D CAP [Suspect]
     Dosage: ONE PR - WEEK  1 PR-WEEK
     Dates: start: 20091223

REACTIONS (1)
  - DYSPEPSIA [None]
